FAERS Safety Report 9601032 (Version 1)
Quarter: 2013Q4

REPORT INFORMATION
  Report Type: Spontaneous
  Country: US (occurrence: US)
  Receive Date: 20131004
  Receipt Date: 20131004
  Transmission Date: 20140711
  Serious: No
  Sender: FDA-Public Use
  Company Number: US-AMGEN-USASP2013038174

PATIENT
  Age: 60 Year
  Sex: Female

DRUGS (2)
  1. ENBREL [Suspect]
     Indication: RHEUMATOID ARTHRITIS
     Dosage: UNK
     Dates: start: 20130301
  2. METHOTREXATE [Concomitant]
     Dosage: 4 - 2.5 PILLS WEEKLY FOR EIGHT YRS, QWK

REACTIONS (1)
  - Mobility decreased [Not Recovered/Not Resolved]
